FAERS Safety Report 23166559 (Version 1)
Quarter: 2023Q4

REPORT INFORMATION
  Report Type: Spontaneous
  Country: FR (occurrence: FR)
  Receive Date: 20231109
  Receipt Date: 20231109
  Transmission Date: 20240109
  Serious: Yes (Hospitalization)
  Sender: FDA-Public Use
  Company Number: None

PATIENT
  Age: 46 Year
  Sex: Male
  Weight: 85 kg

DRUGS (3)
  1. CLINDAMYCIN [Suspect]
     Active Substance: CLINDAMYCIN
     Indication: Erysipelas
     Dosage: 600 MG, 3X/DAY
     Route: 042
     Dates: start: 20231009
  2. AUGMENTIN [Suspect]
     Active Substance: AMOXICILLIN\CLAVULANATE POTASSIUM
     Indication: Erysipelas
     Dosage: 4 G, 1X/DAY
     Route: 042
     Dates: start: 20231008
  3. AMOXICILLIN [Suspect]
     Active Substance: AMOXICILLIN
     Indication: Erysipelas
     Dosage: 4 G, 1X/DAY
     Route: 042
     Dates: start: 20231008

REACTIONS (2)
  - Cholestasis [Recovered/Resolved]
  - Hepatic cytolysis [Recovered/Resolved]

NARRATIVE: CASE EVENT DATE: 20231011
